FAERS Safety Report 19611368 (Version 1)
Quarter: 2021Q3

REPORT INFORMATION
  Report Type: Report from Study
  Country: US (occurrence: US)
  Receive Date: 20210727
  Receipt Date: 20210727
  Transmission Date: 20211014
  Serious: No
  Sender: FDA-Public Use
  Company Number: US-ACADIA PHARMACEUTICALS INC.-ACA-2021-PIM-002475

PATIENT
  Age: 66 Year
  Sex: Male

DRUGS (10)
  1. BISOPROL [Concomitant]
     Active Substance: BISOPROLOL FUMARATE
  2. PREVIDENT [Concomitant]
     Active Substance: SODIUM FLUORIDE
  3. NUPLAZID [Suspect]
     Active Substance: PIMAVANSERIN TARTRATE
     Indication: PARKINSON^S DISEASE
     Dosage: 10 MILLIGRAM, QD AT BEDTIME
     Route: 048
     Dates: start: 20210607
  4. DULOXETINE. [Concomitant]
     Active Substance: DULOXETINE
  5. PRAVASTATIN. [Concomitant]
     Active Substance: PRAVASTATIN
  6. SOLIFENACIN [Concomitant]
     Active Substance: SOLIFENACIN
  7. CLONAZEPAM. [Concomitant]
     Active Substance: CLONAZEPAM
  8. MIRTAZAPINE. [Concomitant]
     Active Substance: MIRTAZAPINE
  9. CARBIDOPA/LEVODOPA [Concomitant]
     Active Substance: CARBIDOPA\LEVODOPA
  10. FINASTERIDE. [Concomitant]
     Active Substance: FINASTERIDE

REACTIONS (2)
  - Underdose [Not Recovered/Not Resolved]
  - Hallucination [Not Recovered/Not Resolved]

NARRATIVE: CASE EVENT DATE: 20210607
